FAERS Safety Report 9515093 (Version 1)
Quarter: 2013Q3

REPORT INFORMATION
  Report Type: Spontaneous
  Country: GB (occurrence: GB)
  Receive Date: 20130911
  Receipt Date: 20130911
  Transmission Date: 20140515
  Serious: Yes (Other)
  Sender: FDA-Public Use
  Company Number: GB-JNJFOC-20130903677

PATIENT
  Age: 76 Year
  Sex: Male
  Weight: 91 kg

DRUGS (2)
  1. XARELTO [Suspect]
     Indication: PRODUCT USED FOR UNKNOWN INDICATION
     Route: 048
     Dates: start: 20130503
  2. CO-CODAMOL [Concomitant]
     Route: 065
     Dates: start: 20130510, end: 20130511

REACTIONS (3)
  - Gynaecomastia [Unknown]
  - Breast swelling [Unknown]
  - Breast tenderness [Unknown]
